FAERS Safety Report 7443176-4 (Version None)
Quarter: 2011Q2

REPORT INFORMATION
  Report Type: 
  Country: None (occurrence: None)
  Receive Date: 20110428
  Receipt Date: 20110422
  Transmission Date: 20111010
  Serious: Yes (Other)
  Sender: FDA-Public Use
  Company Number: A0924780A

PATIENT
  Sex: Female

DRUGS (2)
  1. AVANDIA [Suspect]
     Route: 065
  2. METFORMIN [Concomitant]

REACTIONS (2)
  - LOSS OF CONSCIOUSNESS [None]
  - BLOOD GLUCOSE DECREASED [None]
